FAERS Safety Report 9282673 (Version 2)
Quarter: 2013Q2

REPORT INFORMATION
  Report Type: Spontaneous
  Country: BR (occurrence: BR)
  Receive Date: 20130510
  Receipt Date: 20130521
  Transmission Date: 20140414
  Serious: Yes (Other)
  Sender: FDA-Public Use
  Company Number: BR-SHIRE-ALL1-2013-03001

PATIENT
  Age: 71 Year
  Sex: Male
  Weight: 70 kg

DRUGS (9)
  1. MESACOL MMX [Suspect]
     Indication: DIVERTICULITIS
     Dosage: 2 DF, UNKNOWN (800UG) DAILY
     Route: 048
     Dates: start: 20130425, end: 20130426
  2. MESACOL MMX [Suspect]
     Indication: COLITIS
  3. LOSARTAN [Concomitant]
     Indication: HYPERTENSION
     Dosage: 50 MG, UNKNOWN
     Route: 048
  4. OMEPRAZOLE [Concomitant]
     Indication: GASTRITIS
     Dosage: 20 MG, UNKNOWN
     Route: 048
  5. METAMUCIL                          /00029101/ [Concomitant]
     Indication: CONSTIPATION
     Dosage: 1 DF, UNKNOWN
     Route: 048
  6. DUSPATALIN                         /00139402/ [Concomitant]
     Indication: IRRITABLE BOWEL SYNDROME
     Dosage: 1 DF, UNKNOWN
     Route: 048
  7. HYDROCHLOROTHIAZIDE [Concomitant]
     Indication: HYPERTENSION
     Dosage: 1 DF, UNKNOWN
     Route: 048
  8. FRONTAL [Concomitant]
     Indication: PRODUCT USED FOR UNKNOWN INDICATION
     Dosage: 0.5 MG, UNKNOWN
     Route: 048
  9. SIMETHICONE [Concomitant]
     Indication: FLATULENCE
     Dosage: 16 GTT (75 MG), 3X/DAY:TID
     Route: 048
     Dates: start: 2012

REACTIONS (2)
  - Dry mouth [Recovered/Resolved]
  - Diarrhoea [Recovered/Resolved]
